FAERS Safety Report 7758590-7 (Version None)
Quarter: 2011Q3

REPORT INFORMATION
  Report Type: 
  Country: None (occurrence: None)
  Receive Date: 20110914
  Receipt Date: 20110905
  Transmission Date: 20111222
  Serious: Yes (Disabling)
  Sender: FDA-Public Use
  Company Number: 2011SP041855

PATIENT
  Age: 57 Year
  Sex: Male
  Weight: 102 kg

DRUGS (4)
  1. VIRAFERONPEG [Suspect]
     Indication: HEPATITIS C
     Dates: start: 20110218, end: 20110617
  2. BOCEPREVIR (SCH-503034) [Suspect]
     Indication: HEPATITIS C
     Dosage: 800 MG; TID;
     Dates: start: 20110317, end: 20110617
  3. EPO [Concomitant]
  4. METFORMIN HCL [Concomitant]

REACTIONS (4)
  - OSTEOARTHRITIS [None]
  - CACHEXIA [None]
  - WEIGHT DECREASED [None]
  - MUSCULOSKELETAL DISORDER [None]
